FAERS Safety Report 9453224 (Version 2)
Quarter: 2013Q3

REPORT INFORMATION
  Report Type: Spontaneous
  Country: JP (occurrence: JP)
  Receive Date: 20130812
  Receipt Date: 20130822
  Transmission Date: 20140515
  Serious: Yes (Other)
  Sender: FDA-Public Use
  Company Number: JP-PFIZER INC-2013233362

PATIENT
  Age: 64 Year
  Sex: Female

DRUGS (2)
  1. SELARA [Suspect]
     Indication: HYPERTENSION
     Dosage: 25 MG, 1X/DAY
     Route: 048
     Dates: start: 201109
  2. SELARA [Suspect]
     Indication: CARDIAC FAILURE

REACTIONS (1)
  - Cardiac disorder [Unknown]
